FAERS Safety Report 9742580 (Version 1)
Quarter: 2013Q4

REPORT INFORMATION
  Report Type: Spontaneous
  Country: FR (occurrence: FR)
  Receive Date: 20131210
  Receipt Date: 20131210
  Transmission Date: 20140711
  Serious: Yes (Hospitalization)
  Sender: FDA-Public Use
  Company Number: PHHY2013FR142288

PATIENT
  Age: 63 Year
  Sex: Female

DRUGS (4)
  1. PACLITAXEL EBEWE [Suspect]
     Indication: OVARIAN CANCER
     Dosage: 300 MG, UNK
     Dates: start: 20111216, end: 20111216
  2. CARBOPLATIN [Concomitant]
     Indication: OVARIAN CANCER
     Dosage: 600 MG, UNK
     Route: 042
  3. AZANTAC [Concomitant]
     Dosage: 50 MG, UNK
     Route: 042
  4. APREPITANT [Concomitant]
     Dosage: 125 MG, UNK
     Route: 048

REACTIONS (2)
  - Loss of consciousness [Recovered/Resolved]
  - Dyspnoea [Recovered/Resolved]
